FAERS Safety Report 4959814-1 (Version None)
Quarter: 2006Q1

REPORT INFORMATION
  Report Type: 
  Country: None (occurrence: None)
  Receive Date: 20060324
  Receipt Date: 20060320
  Transmission Date: 20060701
  Serious: Yes (Life-Threatening)
  Sender: FDA-Public Use
  Company Number: HQWYE465322MAR06

PATIENT
  Age: 69 Year
  Sex: Female

DRUGS (11)
  1. MYLOTARG [Suspect]
     Indication: ACUTE MYELOID LEUKAEMIA
     Dosage: 9 MG/M^2 1X PER 1 DAY INTRAVENOUS DRIP; SEE IMAGE
     Route: 041
     Dates: start: 20051124, end: 20051124
  2. MYLOTARG [Suspect]
     Indication: ACUTE MYELOID LEUKAEMIA
     Dosage: 9 MG/M^2 1X PER 1 DAY INTRAVENOUS DRIP; SEE IMAGE
     Route: 041
     Dates: start: 20051208, end: 20051208
  3. FAMOTIDINE [Concomitant]
  4. PANTOSIN          (PANTETHINE) [Concomitant]
  5. MAGNESIUM OXIDE                 (MAGNESIUM OXIDE) [Concomitant]
  6. LASIX [Concomitant]
  7. KYTRIL [Concomitant]
  8. LOXONIN       (LOXOPROFEN SODIUM) [Concomitant]
  9. MUCOSTA            (REBAMIPIDE) [Concomitant]
  10. MAXIPIME [Concomitant]
  11. FUNGUARD     (MICAFUNGIN SODIUM) [Concomitant]

REACTIONS (7)
  - BLOOD LACTATE DEHYDROGENASE INCREASED [None]
  - HAEMATOCRIT DECREASED [None]
  - HAEMOGLOBIN DECREASED [None]
  - MALIGNANT NEOPLASM PROGRESSION [None]
  - PLATELET COUNT DECREASED [None]
  - RED BLOOD CELL COUNT DECREASED [None]
  - SEPSIS [None]
